FAERS Safety Report 5667515-X (Version None)
Quarter: 2008Q1

REPORT INFORMATION
  Report Type: 
  Country: None (occurrence: None)
  Receive Date: 20080315
  Receipt Date: 20080123
  Transmission Date: 20080703
  Serious: No
  Sender: FDA-Public Use
  Company Number: US-ABBOTT-08P-163-0435145-00

PATIENT
  Sex: Female
  Weight: 49.94 kg

DRUGS (6)
  1. HUMIRA [Suspect]
     Indication: RHEUMATOID ARTHRITIS
     Route: 058
     Dates: start: 20080108
  2. ALPRAZOLAM [Concomitant]
     Indication: ANXIETY
     Route: 048
  3. TRAZODONE HCL [Concomitant]
     Indication: ANXIETY
     Route: 048
     Dates: start: 19800101
  4. TRAZODONE HCL [Concomitant]
     Indication: INSOMNIA
  5. ESTROGEN NOS [Concomitant]
     Indication: HORMONE REPLACEMENT THERAPY
     Route: 048
     Dates: start: 19970101
  6. IBUPROFEN [Concomitant]
     Indication: RHEUMATOID ARTHRITIS
     Route: 048

REACTIONS (3)
  - CHILLS [None]
  - DIARRHOEA [None]
  - HYPERHIDROSIS [None]
